FAERS Safety Report 4823705-7 (Version None)
Quarter: 2005Q4

REPORT INFORMATION
  Report Type: 
  Country: None (occurrence: None)
  Receive Date: 20051109
  Receipt Date: 20051011
  Transmission Date: 20060501
  Serious: Yes (Disabling)
  Sender: FDA-Public Use
  Company Number: 2005AP05365

PATIENT
  Age: 31756 Day
  Sex: Male

DRUGS (7)
  1. OMEPRAL [Suspect]
     Indication: GASTRITIS
     Route: 048
     Dates: start: 20050909, end: 20051007
  2. OMEPRAL [Suspect]
     Indication: ANASTOMOTIC ULCER
     Route: 048
     Dates: start: 20050909, end: 20051007
  3. MERISLON [Concomitant]
     Route: 048
     Dates: start: 20040911, end: 20051003
  4. JUVELA [Concomitant]
     Route: 048
     Dates: start: 20040911
  5. EXCELASE [Concomitant]
     Route: 048
     Dates: start: 20050909
  6. ASPIRIN [Concomitant]
     Route: 048
     Dates: start: 20020918
  7. ASPIRIN [Concomitant]
     Route: 048
     Dates: start: 20040918, end: 20050909

REACTIONS (1)
  - RENAL FAILURE [None]
